FAERS Safety Report 7351483-9 (Version None)
Quarter: 2011Q1

REPORT INFORMATION
  Report Type: 
  Country: None (occurrence: None)
  Receive Date: 20110314
  Receipt Date: 20110310
  Transmission Date: 20110831
  Serious: Yes (Hospitalization)
  Sender: FDA-Public Use
  Company Number: DE-MERCK-1103DEU00047

PATIENT
  Age: 79 Year
  Sex: Male

DRUGS (2)
  1. SINEMET [Suspect]
     Indication: PARKINSON'S DISEASE
     Route: 048
     Dates: start: 20040101
  2. SINEMET [Suspect]
     Route: 048
     Dates: start: 19920101, end: 20040101

REACTIONS (4)
  - DYSPNOEA [None]
  - AGITATION [None]
  - DYSKINESIA [None]
  - INCREASED BRONCHIAL SECRETION [None]
